FAERS Safety Report 17087041 (Version 8)
Quarter: 2021Q1

REPORT INFORMATION
  Report Type: Report from Study
  Country: None (occurrence: US)
  Receive Date: 20191128
  Receipt Date: 20210312
  Transmission Date: 20210419
  Serious: Yes (Hospitalization, Other)
  Sender: FDA-Public Use
  Company Number: US-ABBVIE-19P-163-3172085-00

PATIENT
  Age: 79 Year
  Sex: Female

DRUGS (6)
  1. IMBRUVICA [Suspect]
     Active Substance: IBRUTINIB
     Indication: CHRONIC LYMPHOCYTIC LEUKAEMIA
     Route: 048
     Dates: start: 20180608
  2. IMBRUVICA [Suspect]
     Active Substance: IBRUTINIB
     Route: 048
     Dates: start: 201806
  3. IMBRUVICA [Suspect]
     Active Substance: IBRUTINIB
     Route: 048
     Dates: start: 2018
  4. IMBRUVICA [Suspect]
     Active Substance: IBRUTINIB
     Indication: CHRONIC LYMPHOCYTIC LEUKAEMIA
     Route: 048
     Dates: start: 20180607
  5. IMBRUVICA [Suspect]
     Active Substance: IBRUTINIB
     Dosage: TAKE 2 CAPSULES FOR 5 DAYS ON, THEN 2 OFF
     Route: 048
     Dates: start: 20180617
  6. IMBRUVICA [Suspect]
     Active Substance: IBRUTINIB
     Dosage: TAKING 2 CAPSULES FOR 5 CONSECUTIVE DAYS THEN OFF FOR 2 DAYS, THEN REPEATING
     Route: 048
     Dates: end: 202011

REACTIONS (38)
  - Procedural haemorrhage [Unknown]
  - Hair growth abnormal [Unknown]
  - Red blood cell count decreased [Unknown]
  - Cough [Not Recovered/Not Resolved]
  - Chills [Unknown]
  - Arthralgia [Unknown]
  - Abdominal discomfort [Unknown]
  - Abdominal pain [Not Recovered/Not Resolved]
  - Incision site pain [Unknown]
  - Hip fracture [Not Recovered/Not Resolved]
  - Tooth extraction [Not Recovered/Not Resolved]
  - Feeling of body temperature change [Unknown]
  - Flatulence [Not Recovered/Not Resolved]
  - Impaired healing [Unknown]
  - Micturition disorder [Unknown]
  - Fall [Not Recovered/Not Resolved]
  - Diarrhoea [Not Recovered/Not Resolved]
  - Hot flush [Unknown]
  - Toxicity to various agents [Not Recovered/Not Resolved]
  - Skin haemorrhage [Unknown]
  - Heart rate abnormal [Unknown]
  - Skin fissures [Not Recovered/Not Resolved]
  - Tooth fracture [Not Recovered/Not Resolved]
  - Feeling hot [Not Recovered/Not Resolved]
  - Ingrowing nail [Not Recovered/Not Resolved]
  - Diarrhoea [Unknown]
  - Myalgia [Unknown]
  - Nail growth abnormal [Unknown]
  - Joint swelling [Unknown]
  - White blood cell count decreased [Unknown]
  - Localised infection [Not Recovered/Not Resolved]
  - Muscle spasms [Not Recovered/Not Resolved]
  - Productive cough [Not Recovered/Not Resolved]
  - Hyperhidrosis [Not Recovered/Not Resolved]
  - Dizziness [Unknown]
  - Sinusitis [Unknown]
  - Bone pain [Unknown]
  - Nausea [Not Recovered/Not Resolved]

NARRATIVE: CASE EVENT DATE: 2019
